FAERS Safety Report 12606299 (Version 1)
Quarter: 2016Q3

REPORT INFORMATION
  Report Type: Spontaneous
  Country: US (occurrence: US)
  Receive Date: 20160729
  Receipt Date: 20160729
  Transmission Date: 20161109
  Serious: Yes (Other)
  Sender: FDA-Public Use
  Company Number: US-AMGEN-USASP2016096345

PATIENT
  Age: 47 Year
  Sex: Male
  Weight: 72 kg

DRUGS (4)
  1. PROCRIT [Suspect]
     Active Substance: ERYTHROPOIETIN
     Dosage: 6000 UNIT, QWK
     Route: 058
     Dates: start: 201604, end: 201605
  2. PROCRIT [Suspect]
     Active Substance: ERYTHROPOIETIN
     Indication: PRODUCT USED FOR UNKNOWN INDICATION
     Dosage: 8000 UNIT, QWK
     Route: 058
     Dates: start: 201510, end: 201603
  3. PROCRIT [Suspect]
     Active Substance: ERYTHROPOIETIN
     Dosage: 8000 UNIT, QWK
     Route: 058
     Dates: start: 201605, end: 20160630
  4. PROCRIT [Suspect]
     Active Substance: ERYTHROPOIETIN
     Dosage: 7000 UNIT, QWK
     Route: 058
     Dates: start: 20160630

REACTIONS (7)
  - Cardiac disorder [Unknown]
  - Hypertension [Unknown]
  - Stress [Unknown]
  - Drug dose omission [Not Recovered/Not Resolved]
  - Cytomegalovirus infection [Unknown]
  - Incorrect product storage [Unknown]
  - Haemoglobin decreased [Recovered/Resolved]

NARRATIVE: CASE EVENT DATE: 2016
